FAERS Safety Report 6223460-2 (Version None)
Quarter: 2009Q2

REPORT INFORMATION
  Report Type: 
  Country: None (occurrence: None)
  Receive Date: 20090611
  Receipt Date: 20090604
  Transmission Date: 20091009
  Serious: Yes (Hospitalization)
  Sender: FDA-Public Use
  Company Number: FR-GILEAD-2007-0014351

PATIENT
  Sex: Female
  Weight: 55 kg

DRUGS (6)
  1. TRUVADA [Suspect]
     Indication: HIV INFECTION
     Route: 048
     Dates: start: 20070530
  2. SUSTIVA [Concomitant]
     Indication: HIV INFECTION
     Route: 048
     Dates: start: 20070530
  3. RIFINAH [Concomitant]
     Indication: TUBERCULOSIS
     Dates: start: 20070604
  4. RIFAMPICIN [Concomitant]
     Indication: TUBERCULOSIS
  5. RIMIFON IV [Concomitant]
     Indication: TUBERCULOSIS
  6. AMIKLIN [Concomitant]
     Indication: TUBERCULOSIS

REACTIONS (1)
  - CHORIORETINITIS [None]
